FAERS Safety Report 7775846-2 (Version None)
Quarter: 2011Q3

REPORT INFORMATION
  Report Type: 
  Country: None (occurrence: None)
  Receive Date: 20110923
  Receipt Date: 20110921
  Transmission Date: 20111222
  Serious: Yes (Hospitalization)
  Sender: FDA-Public Use
  Company Number: CH-PFIZER INC-2011223766

PATIENT
  Age: 74 Year
  Sex: Male

DRUGS (9)
  1. AUGMENTIN '125' [Suspect]
     Dosage: 2.2 G, 3X/DAY
     Route: 041
     Dates: start: 20110707, end: 20110724
  2. ATORVASTATIN CALCIUM [Concomitant]
     Dosage: 20 MG, 1X/DAY
     Route: 048
     Dates: end: 20110817
  3. ASPIRIN [Concomitant]
     Dosage: 100 MG, 1X/DAY
     Route: 048
  4. NEXIUM [Concomitant]
     Dosage: 20 MG, 1X/DAY
     Route: 048
  5. AMOXICILLIN [Suspect]
     Dosage: 750 MG, 3X/DAY
     Route: 048
     Dates: start: 20110726, end: 20110815
  6. MARCUMAR [Concomitant]
     Dosage: UNK
     Route: 048
  7. NORVASC [Concomitant]
     Dosage: 5 MG, 1X/DAY
     Route: 048
  8. CLINDAMYCIN HCL [Suspect]
     Dosage: 600 MG, 3X/DAY
     Route: 048
     Dates: start: 20110726, end: 20110815
  9. RAMIPRIL [Concomitant]
     Dosage: 10 MG, 1X/DAY
     Route: 048

REACTIONS (6)
  - ALANINE AMINOTRANSFERASE INCREASED [None]
  - GAMMA-GLUTAMYLTRANSFERASE INCREASED [None]
  - BLOOD ALKALINE PHOSPHATASE INCREASED [None]
  - BLOOD BILIRUBIN INCREASED [None]
  - INTERNATIONAL NORMALISED RATIO INCREASED [None]
  - ASPARTATE AMINOTRANSFERASE INCREASED [None]
